FAERS Safety Report 5943439-5 (Version None)
Quarter: 2008Q4

REPORT INFORMATION
  Report Type: 
  Country: None (occurrence: None)
  Receive Date: 20081105
  Receipt Date: 20081105
  Transmission Date: 20090506
  Serious: Yes (Life-Threatening, Hospitalization)
  Sender: FDA-Public Use
  Company Number: None

PATIENT
  Sex: Male

DRUGS (1)
  1. SOTRET [Suspect]
     Indication: ACNE
     Dosage: 30 MGMS B.I.D PO
     Route: 048
     Dates: start: 20080129, end: 20080831

REACTIONS (2)
  - DEPRESSION [None]
  - SUICIDE ATTEMPT [None]
